FAERS Safety Report 8236694-2 (Version None)
Quarter: 2012Q1

REPORT INFORMATION
  Report Type: 
  Country: None (occurrence: None)
  Receive Date: 20120309
  Receipt Date: 20110119
  Transmission Date: 20120608
  Serious: Yes (Hospitalization)
  Sender: FDA-Public Use
  Company Number: PHHY2011US04103

PATIENT
  Age: 63 Year
  Sex: Female

DRUGS (2)
  1. EXTAVIA [Suspect]
     Indication: MULTIPLE SCLEROSIS
     Dosage: 0.25 MG, QOD, SUBCUTANEOUS
     Route: 058
  2. BETASERON [Concomitant]

REACTIONS (8)
  - HYPOAESTHESIA [None]
  - SPEECH DISORDER [None]
  - PARAESTHESIA [None]
  - ASTHENIA [None]
  - MOBILITY DECREASED [None]
  - DYSPHAGIA [None]
  - MULTIPLE SCLEROSIS RELAPSE [None]
  - HEADACHE [None]
